FAERS Safety Report 7446423-8 (Version None)
Quarter: 2011Q2

REPORT INFORMATION
  Report Type: 
  Country: None (occurrence: None)
  Receive Date: 20110429
  Receipt Date: 20110118
  Transmission Date: 20111010
  Serious: No
  Sender: FDA-Public Use
  Company Number: US-ASTRAZENECA-2010SE41931

PATIENT
  Age: 68 Year
  Sex: Male
  Weight: 79.4 kg

DRUGS (12)
  1. NEXIUM [Suspect]
     Route: 048
     Dates: start: 20100801
  2. NEXIUM [Suspect]
     Route: 048
     Dates: start: 20080101
  3. NEXIUM [Suspect]
     Indication: BARRETT'S OESOPHAGUS
     Route: 048
     Dates: start: 20070101
  4. COUMADIN [Concomitant]
  5. XANAX [Concomitant]
  6. NEXIUM [Suspect]
     Route: 048
     Dates: start: 20080101
  7. NEXIUM [Suspect]
     Route: 048
     Dates: start: 20100801
  8. NEXIUM [Suspect]
     Indication: GASTROOESOPHAGEAL REFLUX DISEASE
     Route: 048
     Dates: start: 20070101
  9. ATACAND HCT [Concomitant]
  10. PRAVASTATIN [Concomitant]
  11. DILTIAZEM [Concomitant]
  12. VITAMIN B-12 [Concomitant]
     Route: 048

REACTIONS (5)
  - GLOSSODYNIA [None]
  - HYPERCHLORHYDRIA [None]
  - OROPHARYNGEAL PAIN [None]
  - REGURGITATION [None]
  - DRUG INEFFECTIVE [None]
